FAERS Safety Report 9588462 (Version 1)
Quarter: 2013Q4

REPORT INFORMATION
  Report Type: Spontaneous
  Country: US (occurrence: US)
  Receive Date: 20131003
  Receipt Date: 20131003
  Transmission Date: 20140711
  Serious: No
  Sender: FDA-Public Use
  Company Number: US-AMGEN-USASP2012064179

PATIENT
  Age: 25 Year
  Sex: Female
  Weight: 53.06 kg

DRUGS (6)
  1. ENBREL [Suspect]
     Indication: PRODUCT USED FOR UNKNOWN INDICATION
     Dosage: 50 MG, QWK
     Route: 058
  2. LOESTRIN [Concomitant]
     Dosage: 21 TAB 1.5/30
  3. VALTREX [Concomitant]
     Dosage: 500 MG, UNK
  4. ADDERALL [Concomitant]
     Dosage: 10 MG, UNK
  5. ADVIL                              /00044201/ [Concomitant]
     Dosage: 200 MG, UNK
  6. TYLENOL                            /00020001/ [Concomitant]
     Dosage: 500 MG, UNK

REACTIONS (1)
  - Abdominal distension [Unknown]
